FAERS Safety Report 21824247 (Version 1)
Quarter: 2023Q1

REPORT INFORMATION
  Report Type: Report from Study
  Country: US (occurrence: US)
  Receive Date: 20230105
  Receipt Date: 20230105
  Transmission Date: 20230418
  Serious: No
  Sender: FDA-Public Use
  Company Number: US-ABBVIE-4259330

PATIENT
  Sex: Female

DRUGS (1)
  1. HUMIRA [Suspect]
     Active Substance: ADALIMUMAB
     Indication: Rheumatoid arthritis
     Dosage: CF, FORM STRENGTH: 40 MG
     Route: 058
     Dates: start: 20221104

REACTIONS (3)
  - Epistaxis [Recovered/Resolved]
  - Injection site swelling [Recovering/Resolving]
  - Injection site rash [Recovering/Resolving]
